FAERS Safety Report 6885983-2 (Version None)
Quarter: 2010Q3

REPORT INFORMATION
  Report Type: 
  Country: None (occurrence: None)
  Receive Date: 20100729
  Receipt Date: 20080724
  Transmission Date: 20110219
  Serious: No
  Sender: FDA-Public Use
  Company Number: US-PFIZER INC-2008061905

PATIENT
  Sex: Male
  Weight: 31.8 kg

DRUGS (3)
  1. CELEBREX [Suspect]
     Indication: ARTHROPATHY
     Dates: start: 20030101
  2. CELEBREX [Suspect]
     Indication: ARTHRITIS
  3. ALL OTHER THERAPEUTIC PRODUCTS [Concomitant]

REACTIONS (2)
  - ABDOMINAL DISCOMFORT [None]
  - FEELING HOT [None]
